FAERS Safety Report 4933079-9 (Version None)
Quarter: 2006Q1

REPORT INFORMATION
  Report Type: 
  Country: None (occurrence: None)
  Receive Date: 20060302
  Receipt Date: 20060302
  Transmission Date: 20060701
  Serious: Yes (Other)
  Sender: FDA-Public Use
  Company Number: None

PATIENT
  Age: 71 Year
  Sex: Male
  Weight: 74.8435 kg

DRUGS (9)
  1. LOVASTATIN [Suspect]
     Indication: BLOOD CHOLESTEROL INCREASED
     Dosage: 40 MG QD PO
     Route: 048
     Dates: start: 20021127, end: 20060126
  2. CANNBIS VAPORIZED AD LIB [Concomitant]
  3. GLYBURIDE [Concomitant]
  4. METOPROLOL [Concomitant]
  5. COZAAR [Concomitant]
  6. FELODIPINE [Concomitant]
  7. ASPIRIN [Concomitant]
  8. FOLIC ACID [Concomitant]
  9. MULTIVITAMIN/MULTIMINERAL [Concomitant]

REACTIONS (15)
  - ABDOMINAL PAIN UPPER [None]
  - ALANINE AMINOTRANSFERASE INCREASED [None]
  - ANOREXIA [None]
  - BLOOD PRESSURE INCREASED [None]
  - DISCOMFORT [None]
  - INSOMNIA [None]
  - JAUNDICE [None]
  - MYALGIA [None]
  - NOCTURIA [None]
  - OESOPHAGEAL ACHALASIA [None]
  - POLLAKIURIA [None]
  - RAYNAUD'S PHENOMENON [None]
  - TEMPERATURE INTOLERANCE [None]
  - THIRST [None]
  - WEIGHT DECREASED [None]
